FAERS Safety Report 6310514-5 (Version None)
Quarter: 2009Q3

REPORT INFORMATION
  Report Type: 
  Country: None (occurrence: None)
  Receive Date: 20090814
  Receipt Date: 20090629
  Transmission Date: 20100115
  Serious: Yes (Hospitalization, Other)
  Sender: FDA-Public Use
  Company Number: BR-PFIZER INC-2009234398

PATIENT
  Age: 1 Year

DRUGS (3)
  1. VIAGRA [Suspect]
     Indication: PULMONARY HYPERTENSION
     Dosage: UNK
     Route: 048
     Dates: start: 20080501
  2. CAPTOPRIL [Concomitant]
     Dosage: 25 MG, UNK
     Dates: start: 20080301
  3. FUROSEMIDE [Concomitant]
     Dosage: 40 MG, UNK
     Dates: start: 20080301

REACTIONS (10)
  - ATELECTASIS [None]
  - CATHETER PLACEMENT [None]
  - CYANOSIS [None]
  - DRUG INEFFECTIVE FOR UNAPPROVED INDICATION [None]
  - FATIGUE [None]
  - INCREASED BRONCHIAL SECRETION [None]
  - PULMONARY ARTERY BANDING [None]
  - PULMONARY OEDEMA [None]
  - PYREXIA [None]
  - WRONG TECHNIQUE IN DRUG USAGE PROCESS [None]
